FAERS Safety Report 7397462-7 (Version None)
Quarter: 2011Q2

REPORT INFORMATION
  Report Type: 
  Country: None (occurrence: None)
  Receive Date: 20110406
  Receipt Date: 20110323
  Transmission Date: 20111010
  Serious: Yes (Hospitalization, Other)
  Sender: FDA-Public Use
  Company Number: PHEH2007US15447

PATIENT
  Sex: Male
  Weight: 73.016 kg

DRUGS (44)
  1. ACETAMINOPHEN AND HYDROCODONE BITARTRATE [Concomitant]
  2. VELCADE [Concomitant]
     Dosage: UNK
     Dates: start: 20050101
  3. CLINDAMYCIN [Concomitant]
     Dosage: UNK
  4. ALLOPURINOL [Concomitant]
  5. NABUMETONE [Concomitant]
  6. PHENERGAN [Concomitant]
  7. DEXAMETHASONE [Concomitant]
  8. CLOTRIMAZOLE [Concomitant]
  9. SAW PALMETTO [Concomitant]
  10. SOY ISOFLAVONES [Concomitant]
  11. BENADRYL ^ACHE^ [Concomitant]
  12. FLEXERIL [Concomitant]
  13. FAMOTIDINE [Concomitant]
  14. AREDIA [Suspect]
     Dosage: 60 MG, UNK
  15. PEGFILGRASTIM [Concomitant]
     Dosage: UNK
     Dates: start: 20030811
  16. CIPRO [Concomitant]
     Dosage: UNK
     Dates: start: 20030815
  17. CEFEPIME [Concomitant]
     Dosage: UNK
  18. ZOMETA [Suspect]
     Indication: PATHOLOGICAL FRACTURE
  19. AMOXICILLIN [Concomitant]
     Indication: OSTEONECROSIS
     Dosage: 500 MG, BID
  20. CYCLOBENZAPRINE [Concomitant]
     Dosage: 10 MG, UNK
  21. ZOSYN [Concomitant]
     Dosage: UNK
  22. ZOLPIDEM [Concomitant]
  23. COLOSTRUM [Concomitant]
  24. KYTRIL [Concomitant]
  25. MELPHALAN [Concomitant]
  26. MOXIFLOXACIN HYDROCHLORIDE [Concomitant]
     Dosage: 400 MG DAILY
     Dates: start: 20030715
  27. ZOFRAN [Concomitant]
     Dosage: UNK
     Dates: start: 20030815
  28. VICODIN ES [Concomitant]
  29. LASIX [Concomitant]
  30. CELEBREX [Concomitant]
  31. OXYCODONE [Concomitant]
  32. MULTIVITAMIN ^LAPPE^ [Concomitant]
  33. DECADRON [Concomitant]
  34. CHLORHEXIDINE GLUCONATE [Concomitant]
  35. ZITHROMAX [Concomitant]
     Dosage: UNK
  36. VANCOMYCIN [Concomitant]
     Dosage: UNK
  37. COMPAZINE [Concomitant]
  38. FENTANYL [Concomitant]
  39. DOCUSATE [Concomitant]
  40. SENNA [Concomitant]
  41. ZOMETA [Suspect]
     Indication: BONE EROSION
     Dosage: 4 MG, QMO
     Route: 042
  42. NEXIUM [Concomitant]
  43. REVLIMID [Concomitant]
  44. CLOTRIMAZOLE ^POLFA^ [Concomitant]
     Dosage: UNK

REACTIONS (52)
  - ORAL HERPES [None]
  - NAUSEA [None]
  - CONSTIPATION [None]
  - DENTAL CARIES [None]
  - FEBRILE NEUTROPENIA [None]
  - THROMBOCYTOPENIA [None]
  - EJECTION FRACTION DECREASED [None]
  - CHRONIC SINUSITIS [None]
  - INJURY [None]
  - POOR DENTAL CONDITION [None]
  - VOMITING [None]
  - SPINAL OSTEOARTHRITIS [None]
  - ROAD TRAFFIC ACCIDENT [None]
  - GASTROOESOPHAGEAL REFLUX DISEASE [None]
  - INTERVERTEBRAL DISC PROTRUSION [None]
  - SPINAL FRACTURE [None]
  - TOOTH FRACTURE [None]
  - ABSCESS [None]
  - OSTEOPOROSIS [None]
  - RASH [None]
  - SINUS HEADACHE [None]
  - OSTEOPENIA [None]
  - STAPHYLOCOCCAL INFECTION [None]
  - ATELECTASIS [None]
  - PANCYTOPENIA [None]
  - ANXIETY [None]
  - SUBARACHNOID HAEMORRHAGE [None]
  - ORAL CAVITY FISTULA [None]
  - PARAESTHESIA [None]
  - KYPHOSIS [None]
  - CHILLS [None]
  - POOR PERSONAL HYGIENE [None]
  - EXTRADURAL HAEMATOMA [None]
  - MASS [None]
  - WEIGHT DECREASED [None]
  - PAIN [None]
  - SKIN CANDIDA [None]
  - FRACTURE [None]
  - ENTEROBACTER INFECTION [None]
  - DEHYDRATION [None]
  - NEUROPATHY PERIPHERAL [None]
  - SENSATION OF HEAVINESS [None]
  - ARTHRALGIA [None]
  - COMPRESSION FRACTURE [None]
  - HYPOKALAEMIA [None]
  - APLASTIC ANAEMIA [None]
  - OSTEONECROSIS OF JAW [None]
  - BONE NEOPLASM [None]
  - SUBDURAL HAEMORRHAGE [None]
  - ANGIOPATHY [None]
  - RENAL FAILURE [None]
  - HYPERCALCAEMIA [None]
